FAERS Safety Report 18588151 (Version 1)
Quarter: 2020Q4

REPORT INFORMATION
  Report Type: Spontaneous
  Country: CN (occurrence: CN)
  Receive Date: 20201207
  Receipt Date: 20201207
  Transmission Date: 20210114
  Serious: Yes (Other)
  Sender: FDA-Public Use
  Company Number: CN-PFIZER INC-2020473543

PATIENT
  Age: 26 Year
  Sex: Female
  Weight: 54 kg

DRUGS (1)
  1. MISOPROSTOL. [Suspect]
     Active Substance: MISOPROSTOL
     Indication: ABORTION INDUCED
     Dosage: 0.4 MG, 1X/DAY
     Route: 067
     Dates: start: 20200809, end: 20200809

REACTIONS (4)
  - Product use issue [Unknown]
  - Pyrexia [Recovering/Resolving]
  - Off label use [Unknown]
  - Post abortion infection [Unknown]

NARRATIVE: CASE EVENT DATE: 20200809
